FAERS Safety Report 11375986 (Version 1)
Quarter: 2015Q3

REPORT INFORMATION
  Report Type: Other
  Country: FR (occurrence: FR)
  Receive Date: 20150813
  Receipt Date: 20150813
  Transmission Date: 20151125
  Serious: Yes (Hospitalization)
  Sender: FDA-Public Use
  Company Number: FR-MYLANLABS-2015M1025942

PATIENT

DRUGS (2)
  1. PIPERACILLIN, TAZOBACTAM [Suspect]
     Active Substance: PIPERACILLIN SODIUM\TAZOBACTAM SODIUM
     Indication: OSTEITIS
     Dosage: UNK
     Route: 042
     Dates: start: 20150210, end: 20150311
  2. VANCOMYCINE MYLAN [Suspect]
     Active Substance: VANCOMYCIN
     Indication: OSTEITIS
     Dosage: UNK
     Route: 042
     Dates: start: 20150210, end: 20150307

REACTIONS (2)
  - Drug reaction with eosinophilia and systemic symptoms [Recovered/Resolved]
  - Rash [Recovered/Resolved]

NARRATIVE: CASE EVENT DATE: 20150226
